FAERS Safety Report 9736690 (Version 1)
Quarter: 2013Q4

REPORT INFORMATION
  Report Type: Spontaneous
  Country: US (occurrence: US)
  Receive Date: 20131206
  Receipt Date: 20131206
  Transmission Date: 20140711
  Serious: No
  Sender: FDA-Public Use
  Company Number: US-GILEAD-2009-0023486

PATIENT
  Sex: Female
  Weight: 50.35 kg

DRUGS (17)
  1. LETAIRIS [Suspect]
     Indication: PULMONARY ARTERIAL HYPERTENSION
     Route: 048
     Dates: start: 20090506
  2. COUMADIN [Concomitant]
  3. LASIX [Concomitant]
  4. LOPRESSOR [Concomitant]
  5. ALDACTONE [Concomitant]
  6. METOLAZONE [Concomitant]
  7. LANOXIN [Concomitant]
  8. CARDIZEM [Concomitant]
  9. FOSAMAX [Concomitant]
  10. ASPIRIN [Concomitant]
  11. PLAVIX [Concomitant]
  12. CRESTOR [Concomitant]
  13. LEVOTHROID [Concomitant]
  14. POTASSIUM CHLORIDE [Concomitant]
  15. MOTRIN [Concomitant]
  16. IRON [Concomitant]
  17. OMEPRAZOLE [Concomitant]

REACTIONS (1)
  - Dyspnoea [Recovering/Resolving]
